FAERS Safety Report 18681435 (Version 1)
Quarter: 2020Q4

REPORT INFORMATION
  Report Type: Spontaneous
  Country: US (occurrence: US)
  Receive Date: 20201228
  Receipt Date: 20201228
  Transmission Date: 20210114
  Serious: Yes (Death)
  Sender: FDA-Public Use
  Company Number: None

PATIENT
  Sex: Male

DRUGS (16)
  1. VYNDAMAX [Suspect]
     Active Substance: TAFAMIDIS
     Indication: PRODUCT USED FOR UNKNOWN INDICATION
     Route: 048
     Dates: start: 20200411
  2. DULOXETINE. [Concomitant]
     Active Substance: DULOXETINE
  3. CALCITRIOL. [Concomitant]
     Active Substance: CALCITRIOL
  4. ELIQUIS [Concomitant]
     Active Substance: APIXABAN
  5. TAMSULOSIN [Concomitant]
     Active Substance: TAMSULOSIN
  6. TORSEMIDE. [Concomitant]
     Active Substance: TORSEMIDE
  7. AMIODARONE [Concomitant]
     Active Substance: AMIODARONE
  8. CARVEDILOL. [Concomitant]
     Active Substance: CARVEDILOL
  9. OMEPRAZOLE. [Concomitant]
     Active Substance: OMEPRAZOLE
  10. MECLIZINE [Concomitant]
     Active Substance: MECLIZINE HYDROCHLORIDE
  11. ZOLPIDEM ER [Concomitant]
     Active Substance: ZOLPIDEM TARTRATE
  12. ALLOPURINOL. [Concomitant]
     Active Substance: ALLOPURINOL
  13. ATORVASTATIN [Concomitant]
     Active Substance: ATORVASTATIN
  14. CYANOCOBALAM [Concomitant]
     Active Substance: CYANOCOBALAMIN
  15. METOLAZONE. [Concomitant]
     Active Substance: METOLAZONE
  16. POT CITRATE [Concomitant]
     Active Substance: POTASSIUM CITRATE

REACTIONS (1)
  - Death [None]
